FAERS Safety Report 6438111-1 (Version None)
Quarter: 2009Q4

REPORT INFORMATION
  Report Type: 
  Country: None (occurrence: None)
  Receive Date: 20091112
  Receipt Date: 20091104
  Transmission Date: 20100525
  Serious: Yes (Disabling)
  Sender: FDA-Public Use
  Company Number: GB-MERCK-0506GBR00009

PATIENT
  Sex: Male

DRUGS (2)
  1. ZETIA [Suspect]
     Indication: CORONARY ARTERY DISEASE
     Route: 065
  2. ZETIA [Suspect]
     Indication: HYPERLIPIDAEMIA
     Route: 065

REACTIONS (1)
  - VASCULITIS [None]
